FAERS Safety Report 7530156-3 (Version None)
Quarter: 2011Q2

REPORT INFORMATION
  Report Type: 
  Country: None (occurrence: None)
  Receive Date: 20110606
  Receipt Date: 20110606
  Transmission Date: 20111010
  Serious: No
  Sender: FDA-Public Use
  Company Number: None

PATIENT
  Age: 75 Year
  Sex: Female
  Weight: 49.4421 kg

DRUGS (2)
  1. RISPERIDONE [Suspect]
     Indication: SCHIZOPHRENIA
     Dosage: 37.5 MG/2 WKS INTERVAL 2 WEEKS IM INJECTION
     Route: 030
     Dates: start: 20110405, end: 20110510
  2. RISPERDAL [Suspect]

REACTIONS (8)
  - DYSKINESIA [None]
  - CALCINOSIS [None]
  - PAIN [None]
  - DROOLING [None]
  - DYSPHAGIA [None]
  - ARTHRALGIA [None]
  - BREAST PAIN [None]
  - BONE PAIN [None]
